FAERS Safety Report 5092862-2 (Version None)
Quarter: 2006Q3

REPORT INFORMATION
  Report Type: 
  Country: None (occurrence: None)
  Receive Date: 20060828
  Receipt Date: 20060821
  Transmission Date: 20061208
  Serious: Yes (Hospitalization)
  Sender: FDA-Public Use
  Company Number: GBWYE757022AUG06

PATIENT
  Age: 11 Month
  Sex: Female

DRUGS (5)
  1. IBUPROFEN [Suspect]
     Indication: PYREXIA
     Dosage: 50 MG 2X EPR 1 DAY ORAL
     Route: 048
     Dates: start: 20060719, end: 20060723
  2. CALCIUM RESONIUM (CALCIUM POLYSTYRENE SULFONATE) [Concomitant]
  3. CEFOTAXIME SODIUM [Concomitant]
  4. SALBUTAMOL (SALBUTAMOL) [Concomitant]
  5. TRIMETHOPRIM [Concomitant]

REACTIONS (3)
  - BLOOD POTASSIUM INCREASED [None]
  - PERITONEAL DIALYSIS [None]
  - RENAL DISORDER [None]
